FAERS Safety Report 7688070-9 (Version None)
Quarter: 2011Q3

REPORT INFORMATION
  Report Type: 
  Country: None (occurrence: None)
  Receive Date: 20110817
  Receipt Date: 20110809
  Transmission Date: 20111222
  Serious: Yes (Other)
  Sender: FDA-Public Use
  Company Number: US-BRISTOL-MYERS SQUIBB COMPANY-15958192

PATIENT
  Age: 53 Year
  Sex: Male
  Weight: 82 kg

DRUGS (2)
  1. HEPARIN SODIUM [Suspect]
  2. COUMADIN [Suspect]
     Dosage: RESTARTED ON 25-JUL-11:  7.5MG/D
     Route: 048

REACTIONS (2)
  - WEIGHT DECREASED [None]
  - RENAL FAILURE [None]
